FAERS Safety Report 15985362 (Version 4)
Quarter: 2019Q3

REPORT INFORMATION
  Report Type: Report from Study
  Country: US (occurrence: US)
  Receive Date: 20190220
  Receipt Date: 20190709
  Transmission Date: 20191004
  Serious: Yes (Other)
  Sender: FDA-Public Use
  Company Number: PHHY2018US201324

PATIENT
  Age: 65 Year
  Sex: Male

DRUGS (7)
  1. KYMRIAH [Suspect]
     Active Substance: TISAGENLECLEUCEL
     Indication: DIFFUSE LARGE B-CELL LYMPHOMA
     Dosage: UNK, ONCE/SINGLE
     Route: 041
     Dates: start: 2018
  2. R CHOP [Concomitant]
     Active Substance: CYCLOPHOSPHAMIDE\DOXORUBICIN\PREDNISONE\RITUXIMAB\VINCRISTINE
     Indication: PRODUCT USED FOR UNKNOWN INDICATION
     Route: 065
  3. TREANDA [Concomitant]
     Active Substance: BENDAMUSTINE HYDROCHLORIDE
     Indication: PRODUCT USED FOR UNKNOWN INDICATION
     Route: 065
  4. FLUDARABINE [Concomitant]
     Active Substance: FLUDARABINE PHOSPHATE
     Indication: CHEMOTHERAPY
     Route: 065
  5. MABTHERA [Concomitant]
     Active Substance: RITUXIMAB
     Indication: PRODUCT USED FOR UNKNOWN INDICATION
     Route: 065
  6. RICE [Concomitant]
     Active Substance: BROWN RICE\RICE
     Indication: PRODUCT USED FOR UNKNOWN INDICATION
     Route: 065
  7. CYCLOPHOSPHAMIDE. [Concomitant]
     Active Substance: CYCLOPHOSPHAMIDE
     Indication: CHEMOTHERAPY
     Route: 065

REACTIONS (14)
  - Hypogammaglobulinaemia [Unknown]
  - Cytokine release syndrome [Recovered/Resolved]
  - Platelet count decreased [Unknown]
  - Pyrexia [Unknown]
  - Neutrophil count decreased [Recovered/Resolved]
  - White blood cell count decreased [Unknown]
  - Haemoglobin decreased [Unknown]
  - Haematocrit decreased [Unknown]
  - Lymphocyte count decreased [Unknown]
  - Diffuse large B-cell lymphoma [Unknown]
  - Corona virus infection [Unknown]
  - Rhinovirus infection [Unknown]
  - Out of specification test results [Unknown]
  - Malignant neoplasm progression [Unknown]
